FAERS Safety Report 18935748 (Version 2)
Quarter: 2021Q1

REPORT INFORMATION
  Report Type: Report from Study
  Country: None (occurrence: US)
  Receive Date: 20210225
  Receipt Date: 20210228
  Transmission Date: 20210420
  Serious: Yes (Hospitalization)
  Sender: FDA-Public Use
  Company Number: US-ABBVIE-21K-163-3786350-00

PATIENT
  Sex: Male

DRUGS (1)
  1. HUMIRA [Suspect]
     Active Substance: ADALIMUMAB
     Indication: CROHN^S DISEASE
     Dosage: CITRATE FREE
     Route: 058

REACTIONS (8)
  - Dizziness [Unknown]
  - Tremor [Unknown]
  - Constipation [Unknown]
  - Drug level abnormal [Unknown]
  - Dehydration [Unknown]
  - Therapeutic product effect delayed [Unknown]
  - Pain [Unknown]
  - Cachexia [Recovering/Resolving]
